FAERS Safety Report 6069769-7 (Version None)
Quarter: 2009Q1

REPORT INFORMATION
  Report Type: 
  Country: None (occurrence: None)
  Receive Date: 20090209
  Receipt Date: 20090128
  Transmission Date: 20090719
  Serious: Yes (Hospitalization)
  Sender: FDA-Public Use
  Company Number: US-KINGPHARMUSA00001-K200900090

PATIENT
  Age: 60 Year
  Sex: Male

DRUGS (8)
  1. ALTACE [Suspect]
     Route: 048
  2. SEROQUEL [Suspect]
     Dosage: 200 MG, UNK
     Route: 048
  3. ASPIRIN [Concomitant]
  4. ATIVAN [Concomitant]
  5. CLONAZEPAM [Concomitant]
     Route: 048
  6. KEMADRIN [Concomitant]
  7. LIPITOR [Concomitant]
     Route: 048
  8. METFORMIN HCL [Concomitant]

REACTIONS (6)
  - ABDOMINAL PAIN [None]
  - BENIGN PROSTATIC HYPERPLASIA [None]
  - BODY TEMPERATURE INCREASED [None]
  - HEART RATE INCREASED [None]
  - RESPIRATORY RATE INCREASED [None]
  - URINARY RETENTION [None]
